FAERS Safety Report 25270116 (Version 2)
Quarter: 2025Q2

REPORT INFORMATION
  Report Type: Spontaneous
  Country: HU (occurrence: HU)
  Receive Date: 20250505
  Receipt Date: 20250520
  Transmission Date: 20250716
  Serious: Yes (Other)
  Sender: BAYER HEALTHCARE PHARMACEUTICALS INC.
  Company Number: HU-BAYER-2025A057603

PATIENT
  Sex: Female
  Weight: 69 kg

DRUGS (4)
  1. MIRENA [Suspect]
     Active Substance: LEVONORGESTREL
     Dosage: 20?G/DAY
     Route: 015
     Dates: start: 202003, end: 20240919
  2. NORETHINDRONE [Concomitant]
     Active Substance: NORETHINDRONE
  3. SEASONIQUE [Concomitant]
     Active Substance: ETHINYL ESTRADIOL\LEVONORGESTREL
  4. TINIDAZOLE [Concomitant]
     Active Substance: TINIDAZOLE
     Indication: Trichomoniasis

REACTIONS (8)
  - Cervix haemorrhage uterine [None]
  - Uterine haemorrhage [None]
  - Abdominal pain lower [None]
  - Vulvovaginal discomfort [None]
  - Uterine inflammation [None]
  - Trichomoniasis [None]
  - Genital haemorrhage [None]
  - Vaginal discharge [None]

NARRATIVE: CASE EVENT DATE: 20240919
